FAERS Safety Report 5354403-1 (Version None)
Quarter: 2007Q2

REPORT INFORMATION
  Report Type: 
  Country: None (occurrence: None)
  Receive Date: 20070521
  Receipt Date: 20070409
  Transmission Date: 20071010
  Serious: No
  Sender: FDA-Public Use
  Company Number: WAES 0704USA01341

PATIENT
  Age: 68 Year
  Sex: Female

DRUGS (5)
  1. JANUVIA [Suspect]
     Indication: DIABETES MELLITUS NON-INSULIN-DEPENDENT
     Dosage: 50 MG/DAILY/PO
     Route: 048
     Dates: start: 20070404
  2. CARDIZEM [Concomitant]
  3. DIOVAN [Concomitant]
  4. LYRICA [Concomitant]
  5. ZOLOFT [Concomitant]

REACTIONS (1)
  - FLUID RETENTION [None]
